FAERS Safety Report 6717392-0 (Version None)
Quarter: 2010Q2

REPORT INFORMATION
  Report Type: 
  Country: None (occurrence: None)
  Receive Date: 20100510
  Receipt Date: 20100502
  Transmission Date: 20101027
  Serious: Yes (Other)
  Sender: FDA-Public Use
  Company Number: US-JNJCH-2010010827

PATIENT
  Sex: Male

DRUGS (3)
  1. CHILDREN'S ZYRTEC ALLERGY [Suspect]
     Indication: MALAISE
     Dosage: TEXT:AS DIRECTED
     Route: 048
  2. CHILDREN'S MOTRIN [Suspect]
     Indication: MALAISE
     Dosage: TEXT:AS DIRECTED
     Route: 048
  3. ACETAMINOPHEN [Suspect]
     Indication: MALAISE
     Dosage: TEXT:AS DIRECTED
     Route: 048

REACTIONS (4)
  - AGITATION [None]
  - CONVULSION [None]
  - PRODUCT QUALITY ISSUE [None]
  - PYREXIA [None]
